FAERS Safety Report 7370131-5 (Version None)
Quarter: 2011Q1

REPORT INFORMATION
  Report Type: 
  Country: None (occurrence: None)
  Receive Date: 20110323
  Receipt Date: 20110310
  Transmission Date: 20110831
  Serious: Yes (Hospitalization, Other)
  Sender: FDA-Public Use
  Company Number: PHHY2010BR53724

PATIENT
  Sex: Female

DRUGS (3)
  1. DIOVAN [Suspect]
     Dosage: 160 MG
  2. DIOVAN [Suspect]
     Dosage: 320 MG
  3. DIOVAN [Suspect]
     Indication: HYPERTENSION
     Dosage: UNK

REACTIONS (7)
  - PAIN [None]
  - BLOOD PRESSURE INCREASED [None]
  - WOUND [None]
  - BLOOD GLUCOSE INCREASED [None]
  - CATARACT [None]
  - WEIGHT DECREASED [None]
  - VISION BLURRED [None]
